FAERS Safety Report 22122577 (Version 1)
Quarter: 2023Q1

REPORT INFORMATION
  Report Type: Spontaneous
  Country: ES (occurrence: ES)
  Receive Date: 20230321
  Receipt Date: 20230321
  Transmission Date: 20230418
  Serious: Yes (Other)
  Sender: FDA-Public Use
  Company Number: ES-GILEAD-2023-0620521

PATIENT
  Age: 60 Year
  Sex: Male

DRUGS (14)
  1. RANEXA [Suspect]
     Active Substance: RANOLAZINE
     Indication: Product used for unknown indication
     Dosage: 500 MG, BID
     Route: 065
  2. PANTOPRAZOLE [Suspect]
     Active Substance: PANTOPRAZOLE
     Indication: Product used for unknown indication
     Route: 065
  3. CARVEDILOL [Suspect]
     Active Substance: CARVEDILOL
     Indication: Product used for unknown indication
     Route: 065
  4. ATORVASTATIN\EZETIMIBE [Suspect]
     Active Substance: ATORVASTATIN\EZETIMIBE
     Indication: Product used for unknown indication
     Dosage: 10 MG/10 MG (AT DINNER)
     Route: 065
  5. ATORVASTATIN\EZETIMIBE [Suspect]
     Active Substance: ATORVASTATIN\EZETIMIBE
     Dosage: 40 MG/10 MG (AT DINNER)
     Route: 065
  6. ENALAPRIL [Suspect]
     Active Substance: ENALAPRIL
     Indication: Product used for unknown indication
     Route: 065
  7. SACUBITRIL\VALSARTAN [Suspect]
     Active Substance: SACUBITRIL\VALSARTAN
     Indication: Product used for unknown indication
     Dosage: 102 MG/ 98 MG (51 MG/49 MG, 1 IN EVERY 12 HOURS)
     Route: 065
  8. SACUBITRIL\VALSARTAN [Suspect]
     Active Substance: SACUBITRIL\VALSARTAN
     Dosage: 52 MG/ 48 MG (26 MG/24 MG, 1 IN EVERY 12 HOURS)
     Route: 065
  9. EZETIMIBE\ROSUVASTATIN [Suspect]
     Active Substance: EZETIMIBE\ROSUVASTATIN
     Indication: Product used for unknown indication
     Dosage: 10 MG/10 MG (NOON)
     Route: 065
  10. EZETIMIBE [Suspect]
     Active Substance: EZETIMIBE
     Indication: Product used for unknown indication
     Dosage: (NOON)
     Route: 065
  11. ASPIRIN [Suspect]
     Active Substance: ASPIRIN
     Indication: Product used for unknown indication
     Route: 065
  12. PENTOXIFYLLINE [Suspect]
     Active Substance: PENTOXIFYLLINE
     Indication: Product used for unknown indication
     Route: 065
  13. EPLERENONE [Suspect]
     Active Substance: EPLERENONE
     Indication: Product used for unknown indication
     Route: 065
  14. EVOLOCUMAB [Concomitant]
     Active Substance: EVOLOCUMAB
     Indication: Product used for unknown indication
     Dosage: 140 MILLIGRAM, BIMONTHLY

REACTIONS (13)
  - Tricuspid valve incompetence [Unknown]
  - Myocardial necrosis [Unknown]
  - Ventricular hypokinesia [Unknown]
  - Muscle spasms [Unknown]
  - Chest pain [Unknown]
  - Heart valve stenosis [Unknown]
  - Myalgia [Recovered/Resolved]
  - Aortic bruit [Unknown]
  - Hypokinesia [Unknown]
  - Atrial enlargement [Unknown]
  - Ventricular enlargement [Unknown]
  - Bundle branch block left [Unknown]
  - Dyspnoea [Unknown]
